FAERS Safety Report 5066842-7 (Version None)
Quarter: 2006Q3

REPORT INFORMATION
  Report Type: 
  Country: None (occurrence: None)
  Receive Date: 20060726
  Receipt Date: 20060719
  Transmission Date: 20061208
  Serious: Yes (Death)
  Sender: FDA-Public Use
  Company Number: 056-C5013-06070486

PATIENT
  Age: 65 Year
  Sex: Male

DRUGS (1)
  1. CC-5013 (LENALIDOMIDE) [Suspect]
     Indication: MULTIPLE MYELOMA
     Dosage: 25 MG
     Dates: end: 20060719

REACTIONS (1)
  - DISEASE PROGRESSION [None]
